FAERS Safety Report 7357691-5 (Version None)
Quarter: 2011Q1

REPORT INFORMATION
  Report Type: 
  Country: None (occurrence: None)
  Receive Date: 20110307
  Receipt Date: 20100714
  Transmission Date: 20110831
  Serious: No
  Sender: FDA-Public Use
  Company Number: AEUSA201000267

PATIENT
  Age: 54 Year
  Sex: Male

DRUGS (8)
  1. OLOPATADINE [Concomitant]
  2. ASPIRIN [Concomitant]
  3. LASIX [Concomitant]
  4. PROLASTIN-C [Suspect]
     Indication: ALPHA-1 ANTI-TRYPSIN DEFICIENCY
     Dosage: 5900 MG, QW, IV
     Route: 042
     Dates: start: 20100601
  5. PROLASTIN [Concomitant]
  6. ALBUTEROL [Concomitant]
  7. XANAX [Concomitant]
  8. ADVAIR DISKUS 100/50 [Concomitant]

REACTIONS (4)
  - PRODUCT FORMULATION ISSUE [None]
  - BONE PAIN [None]
  - ASTHENIA [None]
  - VIRAL INFECTION [None]
